FAERS Safety Report 9493132 (Version 3)
Quarter: 2013Q3

REPORT INFORMATION
  Report Type: Report from Study
  Country: DE (occurrence: DE)
  Receive Date: 20130902
  Receipt Date: 20130903
  Transmission Date: 20140515
  Serious: Yes (Hospitalization)
  Sender: FDA-Public Use
  Company Number: DE-009507513-1210DEU010489

PATIENT
  Age: 79 Year
  Sex: Male
  Weight: 107 kg

DRUGS (37)
  1. BLINDED INSULIN [Suspect]
     Indication: TYPE 2 DIABETES MELLITUS
     Dosage: UNK
     Route: 048
     Dates: start: 20110907
  2. BLINDED METFORMIN [Suspect]
     Indication: TYPE 2 DIABETES MELLITUS
     Dosage: UNK
     Route: 048
     Dates: start: 20110907
  3. BLINDED PIOGLITAZONE HYDROCHLORIDE [Suspect]
     Indication: TYPE 2 DIABETES MELLITUS
     Dosage: UNK
     Route: 048
     Dates: start: 20110907
  4. BLINDED PLACEBO [Suspect]
     Indication: TYPE 2 DIABETES MELLITUS
     Dosage: UNK
     Route: 048
     Dates: start: 20110907
  5. BLINDED POST TRIAL THERAPY [Suspect]
     Indication: TYPE 2 DIABETES MELLITUS
     Dosage: UNK
     Route: 048
     Dates: start: 20110907
  6. BLINDED PRE TRIAL THERAPY [Suspect]
     Indication: TYPE 2 DIABETES MELLITUS
     Dosage: UNK
     Route: 048
     Dates: start: 20110907
  7. BLINDED SITAGLIPTIN PHOSPHATE [Suspect]
     Indication: TYPE 2 DIABETES MELLITUS
     Dosage: UNK
     Route: 048
     Dates: start: 20110907
  8. SIOFOR [Concomitant]
     Indication: DIABETES MELLITUS
     Dosage: 1700 MG DAILY
     Dates: start: 20080506
  9. SALMETEROL [Concomitant]
     Indication: ASTHMA
     Dosage: 50 MICROGRAM DAILY
  10. SALMETEROL [Concomitant]
     Indication: SYMPATHOMIMETIC EFFECT
     Dosage: 0.145 MG DAILY
  11. SIMVAHEXAL [Concomitant]
     Indication: HYPERCHOLESTEROLAEMIA
     Dosage: 10 MG DAILY
  12. SIMVAHEXAL [Concomitant]
     Dosage: 20 MG DAILY
  13. ALLOPURINOL [Concomitant]
     Indication: BLOOD URIC ACID
     Dosage: 150 MG DAILY
  14. ALLOPURINOL [Concomitant]
     Dosage: 100 MG DAILY
  15. MADOPAR [Concomitant]
     Indication: DOPAMINERGIC DRUG THERAPY
     Dosage: 300 MG DAILY
  16. INSULIN [Concomitant]
     Indication: DIABETES MELLITUS
     Dosage: 110 IE DAILY
  17. SPIRIVA [Concomitant]
     Indication: ANTICHOLINERGIC SYNDROME
     Dosage: 18 UG DAILY
  18. FLUTICASONE [Concomitant]
     Indication: ASTHMA
     Dosage: 250 MICROGRAM DAILY
  19. FLUTICASONE [Concomitant]
     Indication: BLOOD CORTICOSTERONE
     Dosage: 0.5 MG DAILY
  20. HYDROCHLOROTHIAZIDE [Concomitant]
     Indication: DIURETIC THERAPY
     Dosage: 25 DF DAILY
  21. HYDROCHLOROTHIAZIDE [Concomitant]
     Dosage: 25 MG DAILY
  22. OLMESARTAN MEDOXOMIL [Concomitant]
     Indication: HYPERTENSION
     Dosage: 20 DF DAILY
  23. CLOPIDOGREL [Concomitant]
     Indication: PLATELET AGGREGATION INHIBITION
     Dosage: 75 MG DAILY
  24. URIVESC [Concomitant]
     Indication: URINARY INCONTINENCE
     Dosage: 60 MG DAILY
  25. TAMSULOSIN HYDROCHLORIDE [Concomitant]
     Indication: URINARY INCONTINENCE
     Dosage: 0.4 MG DAILY
  26. THYRONAJOD [Concomitant]
     Indication: HYPOTHYROIDISM
     Dosage: 125 MICROGRAM DAILY
  27. CITALOPRAM [Concomitant]
     Indication: ANTIDEPRESSANT THERAPY
     Dosage: 20 MG DAILY
  28. NEBIVOLOL [Concomitant]
     Indication: HYPERTENSION
     Dosage: 5 MG DAILY
  29. NEBIVOLOL [Concomitant]
     Indication: HYPERTENSION
  30. TORASEMID [Concomitant]
     Indication: DIURETIC THERAPY
     Dosage: 15 MG DAILY
  31. TORASEMID [Concomitant]
     Dosage: 10 MG DAILY
  32. ASPIRIN [Concomitant]
     Indication: PLATELET AGGREGATION INHIBITION
     Dosage: 100 MG DAILY
  33. BENSERAZIDE [Concomitant]
     Indication: DOPAMINERGIC DRUG THERAPY
     Dosage: 100 MG DAILY
  34. TIOTROPIUM BROMIDE [Concomitant]
     Indication: ANTICHOLINERGIC SYNDROME
     Dosage: 18 MICROGRAM DAILY
  35. METFORMIN [Concomitant]
     Indication: DIABETES MELLITUS
     Dosage: 2000 MG DAILY
  36. LEVODOPA [Concomitant]
     Indication: DOPAMINERGIC DRUG THERAPY
     Dosage: 400 MG DAILY
  37. FINASTERIDE [Concomitant]
     Indication: DERMATITIS
     Dosage: 5 MG DAILY

REACTIONS (2)
  - Sciatica [Recovered/Resolved]
  - Sciatica [Recovered/Resolved]
